FAERS Safety Report 11745580 (Version 1)
Quarter: 2015Q4

REPORT INFORMATION
  Report Type: Spontaneous
  Country: US (occurrence: None)
  Receive Date: 20151116
  Receipt Date: 20151116
  Transmission Date: 20160304
  Serious: Yes (Life-Threatening, Disabling, Other)
  Sender: FDA-Public Use
  Company Number: None

PATIENT
  Age: 40 Year
  Sex: Female
  Weight: 79.38 kg

DRUGS (2)
  1. VITAMINS [Concomitant]
     Active Substance: VITAMINS
  2. LEVOTHYROXINE /50 MCG MYLA MYLA I THINK /NDC 00378-1803-01 [Suspect]
     Active Substance: LEVOTHYROXINE
     Indication: THYROID DISORDER
     Dosage: 50 MCG?1 PILL PER DAY BEFORE MEAL?{-?BY MOUTH WITH WATER
     Route: 048
     Dates: start: 201508, end: 201511

REACTIONS (5)
  - Pollakiuria [None]
  - Extra dose administered [None]
  - Pain [None]
  - Product substitution issue [None]
  - Drug ineffective [None]

NARRATIVE: CASE EVENT DATE: 20150908
